FAERS Safety Report 5350739-9 (Version None)
Quarter: 2007Q2

REPORT INFORMATION
  Report Type: 
  Country: None (occurrence: None)
  Receive Date: 20070608
  Receipt Date: 20070601
  Transmission Date: 20071010
  Serious: Yes (Hospitalization)
  Sender: FDA-Public Use
  Company Number: JP-ELI_LILLY_AND_COMPANY-JP200704006022

PATIENT
  Age: 72 Year
  Sex: Female
  Weight: 57 kg

DRUGS (12)
  1. RALOXIFENE HCL [Suspect]
     Indication: OSTEOPOROSIS POSTMENOPAUSAL
     Dosage: 60 MG, DAILY (1/D)
     Route: 048
     Dates: start: 20050105, end: 20051129
  2. RALOXIFENE HCL [Suspect]
     Dosage: 60 MG, DAILY (1/D)
     Route: 048
     Dates: start: 20060306
  3. NIVADIL [Concomitant]
     Indication: HYPERTENSION
     Dosage: 4 MG, DAILY (1/D)
     Route: 048
     Dates: end: 20051119
  4. NIVADIL [Concomitant]
     Dosage: 4 MG, DAILY (1/D)
     Route: 048
     Dates: start: 20060306
  5. ROCALTROL [Concomitant]
     Indication: OSTEOPOROSIS POSTMENOPAUSAL
     Dosage: 0.5 UG, DAILY (1/D)
     Route: 048
     Dates: end: 20051119
  6. ROCALTROL [Concomitant]
     Dosage: 0.5 UG, DAILY (1/D)
     Route: 048
     Dates: start: 20060306
  7. GASTER D [Concomitant]
     Indication: GASTRITIS
     Dosage: 20 MG, DAILY (1/D)
     Route: 048
     Dates: end: 20051119
  8. GASTER D [Concomitant]
     Dosage: 20 MG, DAILY (1/D)
     Route: 048
     Dates: start: 20060306
  9. RIZE [Concomitant]
     Indication: IRRITABLE BOWEL SYNDROME
     Dosage: 10 MG, DAILY (1/D)
     Route: 048
     Dates: end: 20051119
  10. RIZE [Concomitant]
     Dosage: 10 MG, DAILY (1/D)
     Route: 048
     Dates: start: 20060306
  11. SOLANTAL [Concomitant]
     Indication: OSTEOARTHRITIS
     Dosage: 300 MG, UNK
     Route: 048
     Dates: end: 20051119
  12. PONTAL [Concomitant]
     Indication: OSTEOARTHRITIS
     Dosage: 750 MG, UNK
     Route: 048
     Dates: end: 20051119

REACTIONS (2)
  - ANKLE FRACTURE [None]
  - HUMERUS FRACTURE [None]
